FAERS Safety Report 17058884 (Version 2)
Quarter: 2019Q4

REPORT INFORMATION
  Report Type: Report from Study
  Country: AU (occurrence: AU)
  Receive Date: 20191121
  Receipt Date: 20191203
  Transmission Date: 20200122
  Serious: Yes (Hospitalization)
  Sender: FDA-Public Use
  Company Number: AU-JNJFOC-20191114538

PATIENT
  Age: 65 Year
  Sex: Male
  Weight: 92 kg

DRUGS (15)
  1. ZYTIGA [Suspect]
     Active Substance: ABIRATERONE ACETATE
     Route: 048
     Dates: end: 20191029
  2. VITAMIN D3 [Concomitant]
     Active Substance: CHOLECALCIFEROL
     Indication: PROSTATE CANCER
     Route: 065
     Dates: start: 201808
  3. OMEPRAZOLE. [Concomitant]
     Active Substance: OMEPRAZOLE
     Indication: GASTROOESOPHAGEAL REFLUX DISEASE
     Route: 065
     Dates: start: 2001
  4. CITALOPRAM [Concomitant]
     Active Substance: CITALOPRAM HYDROBROMIDE
     Indication: DEPRESSION
     Route: 065
     Dates: start: 2014
  5. OXYCODONE HYDROCHLORIDE. [Concomitant]
     Active Substance: OXYCODONE HYDROCHLORIDE
     Indication: URINARY TRACT PAIN
     Route: 065
     Dates: start: 20190905
  6. GOSERELIN [Concomitant]
     Active Substance: GOSERELIN
     Indication: PROSTATE CANCER
     Route: 065
     Dates: start: 20191003
  7. AMLODIPINE [Concomitant]
     Active Substance: AMLODIPINE BESYLATE
     Indication: HYPERTENSION
     Route: 065
     Dates: start: 201808, end: 20191018
  8. ONDANSETRON [Concomitant]
     Active Substance: ONDANSETRON
     Indication: NAUSEA
     Route: 065
     Dates: start: 20190813
  9. PARACETAMOL [Concomitant]
     Active Substance: ACETAMINOPHEN
     Indication: URINARY TRACT PAIN
     Route: 065
     Dates: start: 20190906
  10. LORAZEPAM. [Concomitant]
     Active Substance: LORAZEPAM
     Indication: NAUSEA
     Route: 065
     Dates: start: 20191004
  11. ZYTIGA [Suspect]
     Active Substance: ABIRATERONE ACETATE
     Indication: PROSTATE CANCER METASTATIC
     Route: 048
     Dates: start: 20190906, end: 20191015
  12. PREDNISOLONE. [Concomitant]
     Active Substance: PREDNISOLONE
     Indication: PROSTATE CANCER METASTATIC
     Route: 048
  13. METOCLOPRAMIDE. [Concomitant]
     Active Substance: METOCLOPRAMIDE
     Indication: NAUSEA
     Route: 065
     Dates: start: 20190917
  14. IRBESARLAM [Concomitant]
     Indication: HYPERTENSION
     Route: 065
     Dates: start: 2004, end: 20191018
  15. IBUPROFEN. [Concomitant]
     Active Substance: IBUPROFEN
     Indication: URINARY TRACT PAIN
     Route: 065
     Dates: start: 20190813

REACTIONS (3)
  - Acute kidney injury [Recovering/Resolving]
  - Adenovirus infection [Recovering/Resolving]
  - Escherichia urinary tract infection [Recovering/Resolving]

NARRATIVE: CASE EVENT DATE: 201910
